FAERS Safety Report 5771483-X (Version None)
Quarter: 2008Q2

REPORT INFORMATION
  Report Type: 
  Country: None (occurrence: None)
  Receive Date: 20080610
  Receipt Date: 20080528
  Transmission Date: 20081010
  Serious: No
  Sender: FDA-Public Use
  Company Number: 234547J08USA

PATIENT
  Age: 15 Year
  Sex: Female

DRUGS (4)
  1. REBIF [Suspect]
     Indication: OFF LABEL USE
     Dosage: 8.8  MCG, 3 IN 1 WEEKS, SUBCUTANEOUS
     Route: 058
     Dates: start: 20080506
  2. BENADRYL [Concomitant]
  3. CLARITIN [Concomitant]
  4. KEPPRA [Concomitant]

REACTIONS (4)
  - DEPRESSED MOOD [None]
  - EMOTIONAL DISORDER [None]
  - FATIGUE [None]
  - INFLUENZA LIKE ILLNESS [None]
